FAERS Safety Report 5093647-3 (Version None)
Quarter: 2006Q3

REPORT INFORMATION
  Report Type: 
  Country: None (occurrence: None)
  Receive Date: 20060829
  Receipt Date: 20060815
  Transmission Date: 20061208
  Serious: Yes (Other)
  Sender: FDA-Public Use
  Company Number: 2006-146691-NL

PATIENT
  Age: 31 Year
  Sex: Female
  Weight: 52.6 kg

DRUGS (2)
  1. NUVARING [Suspect]
     Indication: CONTRACEPTION
     Dosage: VAGINAL, 3 WEKS IN, 1 WEEK OUT
     Route: 067
     Dates: start: 20060201, end: 20060804
  2. ZOLOFT [Concomitant]

REACTIONS (3)
  - CALCINOSIS [None]
  - METRORRHAGIA [None]
  - NEPHROLITHIASIS [None]
